FAERS Safety Report 23802169 (Version 1)
Quarter: 2024Q2

REPORT INFORMATION
  Report Type: Spontaneous
  Country: FR (occurrence: FR)
  Receive Date: 20240501
  Receipt Date: 20240501
  Transmission Date: 20240716
  Serious: Yes (Other)
  Sender: FDA-Public Use
  Company Number: FR-STRIDES ARCOLAB LIMITED-2024SP005041

PATIENT
  Age: 48 Year
  Sex: Female

DRUGS (2)
  1. DISULFIRAM [Suspect]
     Active Substance: DISULFIRAM
     Indication: Alcohol abuse
     Dosage: 500 MILLIGRAM, QD
     Route: 065
  2. DISULFIRAM [Suspect]
     Active Substance: DISULFIRAM
     Dosage: 1000 MILLIGRAM, QD (ERRONEOUSLY DOUBLED)
     Route: 065

REACTIONS (9)
  - Wernicke^s encephalopathy [Recovered/Resolved]
  - Axonal neuropathy [Recovered/Resolved]
  - Parkinsonism [Unknown]
  - Metabolic acidosis [Unknown]
  - Peripheral sensorimotor neuropathy [Unknown]
  - Breast abscess [Unknown]
  - Toxicity to various agents [Unknown]
  - Accidental overdose [Unknown]
  - Incorrect dose administered [Unknown]
